FAERS Safety Report 6573658-9 (Version None)
Quarter: 2010Q1

REPORT INFORMATION
  Report Type: 
  Country: None (occurrence: None)
  Receive Date: 20100208
  Receipt Date: 20100126
  Transmission Date: 20100710
  Serious: Yes (Hospitalization, Other)
  Sender: FDA-Public Use
  Company Number: US-BAYER-200943537NA

PATIENT
  Age: 72 Year
  Sex: Female
  Weight: 54 kg

DRUGS (6)
  1. NEXAVAR [Suspect]
     Indication: HEPATIC NEOPLASM MALIGNANT
     Dosage: AS USED: 400- MG  UNIT DOSE: 200 MG
     Route: 048
     Dates: start: 20091124, end: 20091215
  2. NEXAVAR [Suspect]
     Dosage: AS USED: 400 MG  UNIT DOSE: 200 MG
     Route: 048
     Dates: start: 20090923, end: 20091123
  3. HYDROCHLOROTHIAZIDE [Concomitant]
  4. ATACAND [Concomitant]
  5. FUROSEMIDE [Concomitant]
     Dosage: AS USED: 40 MG
     Dates: start: 20091230
  6. SPIRONOLACT [Concomitant]
     Dosage: AS USED: 50 MG
     Dates: start: 20091230

REACTIONS (9)
  - ASCITES [None]
  - BLOOD MAGNESIUM DECREASED [None]
  - BLOOD PRESSURE DECREASED [None]
  - DECREASED APPETITE [None]
  - DIARRHOEA [None]
  - HEPATIC FUNCTION ABNORMAL [None]
  - HYPOKALAEMIA [None]
  - LABORATORY TEST ABNORMAL [None]
  - MYOCARDIAL INFARCTION [None]
